FAERS Safety Report 21594477 (Version 1)
Quarter: 2022Q4

REPORT INFORMATION
  Report Type: Spontaneous
  Country: US (occurrence: US)
  Receive Date: 20221115
  Receipt Date: 20221115
  Transmission Date: 20230112
  Serious: No
  Sender: FDA-Public Use
  Company Number: US-Accord-265471

PATIENT
  Age: 71 Year
  Sex: Male

DRUGS (2)
  1. SPIRONOLACTONE [Suspect]
     Active Substance: SPIRONOLACTONE
     Indication: Cardiac failure congestive
     Dosage: ONCE DAILY
     Route: 048
     Dates: start: 20220529
  2. CHLORTHALIDONE [Concomitant]
     Active Substance: CHLORTHALIDONE
     Indication: Cardiac failure congestive
     Dosage: STRENGTH: 25MG, 1/2 TABLET DAILY
     Route: 048

REACTIONS (3)
  - Abdominal discomfort [Not Recovered/Not Resolved]
  - Intentional dose omission [Unknown]
  - Product size issue [Unknown]

NARRATIVE: CASE EVENT DATE: 20220531
